FAERS Safety Report 25165582 (Version 1)
Quarter: 2025Q2

REPORT INFORMATION
  Report Type: Spontaneous
  Country: US (occurrence: US)
  Receive Date: 20250407
  Receipt Date: 20250407
  Transmission Date: 20250717
  Serious: No
  Sender: ROCHE
  Company Number: US-ROCHE-10000248399

PATIENT
  Age: 34 Year
  Sex: Male

DRUGS (1)
  1. HEMLIBRA [Suspect]
     Active Substance: EMICIZUMAB-KXWH
     Indication: Factor VIII deficiency
     Route: 065

REACTIONS (4)
  - Gait disturbance [Unknown]
  - Arthralgia [Unknown]
  - Arthralgia [Not Recovered/Not Resolved]
  - Haemorrhage [Unknown]
